FAERS Safety Report 15424406 (Version 1)
Quarter: 2018Q3

REPORT INFORMATION
  Report Type: Spontaneous
  Country: US (occurrence: US)
  Receive Date: 20180918
  Receipt Date: 20180918
  Transmission Date: 20181010
  Serious: Yes (Death, Hospitalization)
  Sender: FDA-Public Use
  Company Number: None

PATIENT
  Age: 18 Year
  Sex: Female
  Weight: 38.6 kg

DRUGS (5)
  1. CYTARABINE. [Suspect]
     Active Substance: CYTARABINE
     Dates: end: 20180820
  2. PREDNISONE. [Suspect]
     Active Substance: PREDNISONE
     Dates: end: 20180911
  3. VINCRISTINE SULFATE. [Suspect]
     Active Substance: VINCRISTINE SULFATE
     Dates: end: 20180828
  4. DAUNORUBICIN [Suspect]
     Active Substance: DAUNORUBICIN
     Dates: end: 20180905
  5. ONCASPAR [Suspect]
     Active Substance: PEGASPARGASE
     Dates: end: 20180824

REACTIONS (11)
  - Seizure [None]
  - Fungal infection [None]
  - Renal failure [None]
  - Hypotension [None]
  - Hypophagia [None]
  - Oral candidiasis [None]
  - Respiratory failure [None]
  - Febrile neutropenia [None]
  - Shock [None]
  - Cardiac arrest [None]
  - Neurological decompensation [None]

NARRATIVE: CASE EVENT DATE: 20180912
